FAERS Safety Report 4392252-1 (Version None)
Quarter: 2004Q3

REPORT INFORMATION
  Report Type: 
  Country: None (occurrence: None)
  Receive Date: 20040702
  Receipt Date: 20040302
  Transmission Date: 20050211
  Serious: Yes (Other)
  Sender: FDA-Public Use
  Company Number: 2004UW03802

PATIENT
  Age: 73 Year
  Sex: Male
  Weight: 83.4619 kg

DRUGS (4)
  1. CRESTOR [Suspect]
     Indication: BLOOD CHOLESTEROL INCREASED
     Dosage: 10 MG PO
     Route: 048
  2. PLAVIX [Suspect]
  3. NORVASC [Suspect]
  4. ASPIRIN [Concomitant]

REACTIONS (1)
  - OEDEMA PERIPHERAL [None]
